FAERS Safety Report 13393429 (Version 1)
Quarter: 2017Q1

REPORT INFORMATION
  Report Type: Spontaneous
  Country: TR (occurrence: TR)
  Receive Date: 20170331
  Receipt Date: 20170331
  Transmission Date: 20170429
  Serious: Yes (Hospitalization, Other)
  Sender: FDA-Public Use
  Company Number: TR-ELI_LILLY_AND_COMPANY-TR201703012204

PATIENT
  Age: 17 Year
  Sex: Male

DRUGS (6)
  1. BIPERIDEN [Concomitant]
     Active Substance: BIPERIDEN
     Indication: PRODUCT USED FOR UNKNOWN INDICATION
     Dosage: 2 MG, QD
     Route: 065
  2. OLANZAPINE. [Suspect]
     Active Substance: OLANZAPINE
     Dosage: 5 MG, QD
     Route: 065
  3. CLOZAPINE. [Suspect]
     Active Substance: CLOZAPINE
     Indication: PRODUCT USED FOR UNKNOWN INDICATION
     Dosage: 12.5 MG, QD
     Route: 065
  4. OLANZAPINE. [Suspect]
     Active Substance: OLANZAPINE
     Indication: PRODUCT USED FOR UNKNOWN INDICATION
     Dosage: 10 MG, QD
     Route: 065
  5. RISPERIDONE. [Suspect]
     Active Substance: RISPERIDONE
     Indication: PRODUCT USED FOR UNKNOWN INDICATION
     Dosage: 2 MG, QD
     Route: 065
  6. BIPERIDEN [Concomitant]
     Active Substance: BIPERIDEN
     Dosage: 6 MG, QD

REACTIONS (17)
  - Suicidal behaviour [Unknown]
  - Bradykinesia [Unknown]
  - Dyspnoea [Unknown]
  - Neuroleptic malignant syndrome [Recovered/Resolved]
  - Parkinsonism [Unknown]
  - Pulmonary oedema [Recovering/Resolving]
  - Cogwheel rigidity [Unknown]
  - Dysphagia [Unknown]
  - Psychotic disorder [Unknown]
  - Cardiac failure [Recovering/Resolving]
  - Agitation [Unknown]
  - Cotard^s syndrome [Unknown]
  - Catatonia [Unknown]
  - Major depression [Unknown]
  - Vomiting [Unknown]
  - Haemoptysis [Unknown]
  - Wheezing [Unknown]
